FAERS Safety Report 6759385-3 (Version None)
Quarter: 2010Q2

REPORT INFORMATION
  Report Type: 
  Country: None (occurrence: None)
  Receive Date: 20100528
  Receipt Date: 20100512
  Transmission Date: 20101027
  Serious: Yes (Other)
  Sender: FDA-Public Use
  Company Number: 2010SCPR000737

PATIENT
  Age: 43 Year
  Sex: Female

DRUGS (4)
  1. IBUPROFEN [Suspect]
     Indication: DRUG USE FOR UNKNOWN INDICATION
     Dosage: 10 DF, ORAL
     Route: 048
     Dates: start: 20100511, end: 20100511
  2. ONE-A-DAY WOMEN'S(ACACIA SENEGAL, ASCORBIC ACID, BETACAROTENE, CALCIUM [Suspect]
     Indication: DRUG USE FOR UNKNOWN INDICATION
     Dosage: 6 DF, ORAL; 20 DF, ORAL
     Route: 048
     Dates: start: 20100511, end: 20100511
  3. ONE-A-DAY WOMEN'S(ACACIA SENEGAL, ASCORBIC ACID, BETACAROTENE, CALCIUM [Suspect]
     Indication: DRUG USE FOR UNKNOWN INDICATION
     Dosage: 6 DF, ORAL; 20 DF, ORAL
     Route: 048
     Dates: start: 20100512
  4. MAXZIDE [Concomitant]

REACTIONS (3)
  - ABNORMAL BEHAVIOUR [None]
  - MULTIPLE DRUG OVERDOSE INTENTIONAL [None]
  - SOMNOLENCE [None]
